FAERS Safety Report 7835299-2 (Version None)
Quarter: 2011Q4

REPORT INFORMATION
  Report Type: 
  Country: None (occurrence: None)
  Receive Date: 20111024
  Receipt Date: 20111011
  Transmission Date: 20120403
  Serious: Yes (Hospitalization)
  Sender: FDA-Public Use
  Company Number: US-ASTRAZENECA-2011SE57422

PATIENT
  Age: 71 Year
  Sex: Male
  Weight: 90.7 kg

DRUGS (3)
  1. SEROQUEL XR [Suspect]
     Indication: BIPOLAR DISORDER
     Route: 048
     Dates: start: 20110913, end: 20110914
  2. ANTIDEPRESSANTS [Concomitant]
  3. CELEXA [Concomitant]
     Indication: ANXIETY
     Route: 048
     Dates: end: 20110914

REACTIONS (1)
  - SEROTONIN SYNDROME [None]
